FAERS Safety Report 9525651 (Version 2)
Quarter: 2013Q3

REPORT INFORMATION
  Report Type: Report from Study
  Country: US (occurrence: US)
  Receive Date: 20130916
  Receipt Date: 20130916
  Transmission Date: 20140515
  Serious: Yes (Hospitalization)
  Sender: FDA-Public Use
  Company Number: US-SANOFI-AVENTIS-2013SA089072

PATIENT
  Sex: Female

DRUGS (1)
  1. AUBAGIO [Suspect]
     Route: 048

REACTIONS (11)
  - Convulsion [Unknown]
  - Eye movement disorder [Unknown]
  - Increased appetite [Unknown]
  - Weight increased [Unknown]
  - Nervousness [Unknown]
  - Asthenia [Unknown]
  - Sluggishness [Unknown]
  - Depression [Unknown]
  - Hallucination [Unknown]
  - Memory impairment [Unknown]
  - Cognitive disorder [Unknown]
